FAERS Safety Report 6356550-4 (Version None)
Quarter: 2009Q3

REPORT INFORMATION
  Report Type: 
  Country: None (occurrence: None)
  Receive Date: 20090915
  Receipt Date: 20090910
  Transmission Date: 20100115
  Serious: Yes (Other)
  Sender: FDA-Public Use
  Company Number: US-TEVA-209081USA

PATIENT
  Sex: Male

DRUGS (1)
  1. PROPOFOL [Suspect]
     Route: 042

REACTIONS (2)
  - PRODUCT CONTAMINATION MICROBIAL [None]
  - PYREXIA [None]
